FAERS Safety Report 6404080-3 (Version None)
Quarter: 2009Q4

REPORT INFORMATION
  Report Type: 
  Country: None (occurrence: None)
  Receive Date: 20091016
  Receipt Date: 20091007
  Transmission Date: 20100525
  Serious: Yes (Other)
  Sender: FDA-Public Use
  Company Number: GB-PFIZER INC-2009280392

PATIENT

DRUGS (1)
  1. GABAPENTIN [Suspect]
     Dosage: UNK

REACTIONS (4)
  - AFFECT LABILITY [None]
  - DELUSION [None]
  - HALLUCINATION, AUDITORY [None]
  - PERSONALITY DISORDER [None]
